FAERS Safety Report 4411024-2 (Version None)
Quarter: 2004Q3

REPORT INFORMATION
  Report Type: 
  Country: None (occurrence: None)
  Receive Date: 20040729
  Receipt Date: 20040723
  Transmission Date: 20050211
  Serious: Yes (Death, Hospitalization)
  Sender: FDA-Public Use
  Company Number: JP-BRISTOL-MYERS SQUIBB COMPANY-12652145

PATIENT
  Age: 80 Year
  Sex: Male

DRUGS (9)
  1. PRAVASTATIN SODIUM [Suspect]
     Indication: HYPERLIPIDAEMIA
     Route: 048
     Dates: start: 20040303, end: 20040601
  2. PREDONINE [Concomitant]
     Dates: end: 20040601
  3. NORVASC [Concomitant]
     Dates: end: 20040601
  4. THEOLONG [Concomitant]
     Dates: end: 20040601
  5. ALLOPURINOL TAB [Concomitant]
     Dates: end: 20040601
  6. CEFZON [Concomitant]
     Dates: start: 20040531
  7. MUCODYNE [Concomitant]
     Dates: start: 20040531
  8. PL GRANULES [Concomitant]
     Dates: start: 20040531
  9. MEDICON [Concomitant]
     Dates: start: 20040531

REACTIONS (5)
  - CARDIAC FAILURE [None]
  - CARDIOMYOPATHY [None]
  - DYSPHAGIA [None]
  - RHABDOMYOLYSIS [None]
  - STATUS ASTHMATICUS [None]
